FAERS Safety Report 5879558-1 (Version None)
Quarter: 2008Q3

REPORT INFORMATION
  Report Type: 
  Country: None (occurrence: None)
  Receive Date: 20080912
  Receipt Date: 20080902
  Transmission Date: 20090109
  Serious: Yes (Other)
  Sender: FDA-Public Use
  Company Number: US-JNJFOC-20080901530

PATIENT
  Sex: Male

DRUGS (3)
  1. EXTRA STRENGTH TYLENOL [Suspect]
     Indication: PYREXIA
  2. EXTRA STRENGTH TYLENOL [Suspect]
     Indication: HEADACHE
  3. BENYLIN DM [Suspect]
     Indication: COUGH

REACTIONS (1)
  - BLOOD URINE PRESENT [None]
